FAERS Safety Report 24673919 (Version 2)
Quarter: 2025Q2

REPORT INFORMATION
  Report Type: Spontaneous
  Country: US (occurrence: US)
  Receive Date: 20241128
  Receipt Date: 20250416
  Transmission Date: 20250717
  Serious: Yes (Hospitalization, Other)
  Sender: TEVA
  Company Number: US-TEVA-VS-3266876

PATIENT
  Age: 63 Year
  Sex: Male

DRUGS (12)
  1. MYCOPHENOLATE MOFETIL [Suspect]
     Active Substance: MYCOPHENOLATE MOFETIL
     Indication: Immunosuppressant drug therapy
     Route: 065
  2. RIFABUTIN [Interacting]
     Active Substance: RIFABUTIN
     Indication: Mycobacterium haemophilum infection
     Route: 065
  3. LINEZOLID [Suspect]
     Active Substance: LINEZOLID
     Indication: Mycobacterium haemophilum infection
     Route: 065
  4. TACROLIMUS [Interacting]
     Active Substance: TACROLIMUS
     Indication: Immunosuppressant drug therapy
     Route: 065
  5. TACROLIMUS [Interacting]
     Active Substance: TACROLIMUS
     Indication: Immunosuppressant drug therapy
     Route: 065
  6. AZITHROMYCIN [Interacting]
     Active Substance: AZITHROMYCIN
     Indication: Mycobacterium haemophilum infection
     Route: 065
  7. CIPROFLOXACIN [Interacting]
     Active Substance: CIPROFLOXACIN
     Indication: Mycobacterium haemophilum infection
     Route: 065
  8. CLOFAZIMINE [Interacting]
     Active Substance: CLOFAZIMINE
     Indication: Mycobacterium haemophilum infection
     Route: 065
  9. BELATACEPT [Suspect]
     Active Substance: BELATACEPT
     Indication: Immunosuppressant drug therapy
     Route: 042
  10. BASILIXIMAB [Suspect]
     Active Substance: BASILIXIMAB
     Indication: Immunosuppressant drug therapy
     Route: 065
  11. PREDNISONE [Suspect]
     Active Substance: PREDNISONE
     Indication: Immunosuppressant drug therapy
     Route: 065
  12. EVEROLIMUS [Suspect]
     Active Substance: EVEROLIMUS
     Indication: Immunosuppressant drug therapy
     Route: 065

REACTIONS (6)
  - Mycobacterium haemophilum infection [Unknown]
  - Respiratory syncytial virus infection [Recovered/Resolved]
  - Drug interaction [Unknown]
  - Immunosuppressant drug level decreased [Unknown]
  - Neuropathy peripheral [Unknown]
  - Electrocardiogram QT prolonged [Unknown]
